FAERS Safety Report 17065483 (Version 1)
Quarter: 2019Q4

REPORT INFORMATION
  Report Type: Spontaneous
  Country: CN (occurrence: CN)
  Receive Date: 20191122
  Receipt Date: 20191122
  Transmission Date: 20200122
  Serious: Yes (Hospitalization, Other)
  Sender: FDA-Public Use
  Company Number: CN-UCBSA-2019048663

PATIENT
  Age: 54 Year
  Sex: Male
  Weight: 56 kg

DRUGS (9)
  1. LEVOFLOXACIN HYDROCHLORIDE [Suspect]
     Active Substance: LEVOFLOXACIN HYDROCHLORIDE
     Indication: INFECTION
     Dosage: 0.4 GRAM, ONCE DAILY (QD)
     Route: 041
     Dates: start: 20191015, end: 20191104
  2. CALCIUM GLUCONATE. [Suspect]
     Active Substance: CALCIUM GLUCONATE
     Indication: HYPERSENSITIVITY
     Dosage: 10 MILLIGRAM
     Route: 042
     Dates: start: 20191104
  3. DESLORATADINE CITRATE DISODIUM [Suspect]
     Active Substance: DESLORATADINE
     Indication: HYPERSENSITIVITY
     Dosage: 8.8 MILLIGRAM
     Route: 048
     Dates: start: 20191103
  4. COMPOUND GLYCYRRHIZIN [CYSTEINE;GLYCINE;GLYCYRRHIZIC ACID] [Suspect]
     Active Substance: CYSTEINE\GLYCINE\GLYCYRRHIZIN
     Indication: HYPERSENSITIVITY
     Dosage: 2 DOSAGE FORM, 3X/DAY (TID)
     Dates: start: 20191104
  5. DESONIDE. [Suspect]
     Active Substance: DESONIDE
     Indication: HYPERSENSITIVITY
     Dosage: CREAM EXTERNALLY APPLIED BID
     Dates: start: 20191104
  6. SULPERAZON [Suspect]
     Active Substance: CEFOPERAZONE SODIUM\SULBACTAM SODIUM
     Indication: INFECTION
     Dosage: 3 GRAM, 3X/DAY (TID)
     Route: 041
     Dates: start: 20191015, end: 20191104
  7. METHYLPREDNISOLONE. [Suspect]
     Active Substance: METHYLPREDNISOLONE
     Indication: HYPERSENSITIVITY
     Dosage: 40 MILLIGRAM
     Route: 042
     Dates: start: 20191104
  8. LEVOCETIRIZINE HYDROCHLORIDE [Suspect]
     Active Substance: LEVOCETIRIZINE HYDROCHLORIDE
     Indication: HYPERSENSITIVITY
     Dosage: 5 MILLIGRAM, ONCE DAILY (QD)
     Route: 048
     Dates: start: 20191104
  9. DEXAMETHASONE. [Suspect]
     Active Substance: DEXAMETHASONE
     Indication: HYPERSENSITIVITY
     Dosage: 5 MILLIGRAM
     Route: 042
     Dates: start: 20191103

REACTIONS (2)
  - Rash [Recovering/Resolving]
  - Pruritus [Recovering/Resolving]

NARRATIVE: CASE EVENT DATE: 20191104
